FAERS Safety Report 22755360 (Version 4)
Quarter: 2023Q4

REPORT INFORMATION
  Report Type: Report from Study
  Country: CN (occurrence: None)
  Receive Date: 20230727
  Receipt Date: 20231003
  Transmission Date: 20240110
  Serious: Yes (Hospitalization)
  Sender: FDA-Public Use
  Company Number: CN-Eisai Medical Research-EC-2023-145121

PATIENT
  Age: 68 Year
  Sex: Male
  Weight: 61.6 kg

DRUGS (18)
  1. LENVATINIB [Suspect]
     Active Substance: LENVATINIB
     Indication: Oesophageal cancer metastatic
     Dosage: STARTING DOSE AT 8MG, FLUCTUATED DOSAGE
     Route: 048
     Dates: start: 20230424, end: 20230709
  2. LENVATINIB [Suspect]
     Active Substance: LENVATINIB
     Dosage: STARTING DOSE AT 4MG, FLUCTUATED DOSAGE
     Route: 048
     Dates: start: 20230718
  3. PEMBROLIZUMAB [Suspect]
     Active Substance: PEMBROLIZUMAB
     Indication: Oesophageal cancer metastatic
     Route: 041
     Dates: start: 20230424, end: 20230607
  4. PEMBROLIZUMAB [Suspect]
     Active Substance: PEMBROLIZUMAB
     Route: 041
     Dates: start: 20230719
  5. PACLITAXEL [Suspect]
     Active Substance: PACLITAXEL
     Indication: Oesophageal cancer metastatic
     Route: 042
     Dates: start: 20230425, end: 20230629
  6. CISPLATIN [Suspect]
     Active Substance: CISPLATIN
     Indication: Oesophageal cancer metastatic
     Route: 042
     Dates: start: 20230425, end: 20230630
  7. BISOPROLOL FUMARATE [Concomitant]
     Active Substance: BISOPROLOL FUMARATE
     Dates: start: 20230512, end: 20230806
  8. CAFFEIC ACID [Concomitant]
     Active Substance: CAFFEIC ACID
     Dates: start: 20230615, end: 20230622
  9. GRANULOCYTE COLONY-STIMULATING FACTOR NOS [Concomitant]
     Active Substance: GRANULOCYTE COLONY-STIMULATING FACTOR NOS
     Dates: start: 20230619, end: 20230622
  10. CIMETIDINE [Concomitant]
     Active Substance: CIMETIDINE
     Dates: start: 20230628, end: 20230628
  11. DEXAMETHASONE SODIUM PHOSPHATE [Concomitant]
     Active Substance: DEXAMETHASONE SODIUM PHOSPHATE
     Dates: start: 20230628, end: 20230628
  12. DIPHENHYDRAMINE HYDROCHLORIDE [Concomitant]
     Active Substance: DIPHENHYDRAMINE HYDROCHLORIDE
     Dates: start: 20230628, end: 20230628
  13. PYRIDOXINE [Concomitant]
     Active Substance: PYRIDOXINE
     Dates: start: 20230628, end: 20230629
  14. ASCORBIC ACID [Concomitant]
     Active Substance: ASCORBIC ACID
     Dates: start: 20230628, end: 20230629
  15. APREPITANT [Concomitant]
     Active Substance: APREPITANT
     Dates: start: 20230628, end: 20230628
  16. METOCLOPRAMIDE HYDROCHLORIDE [Concomitant]
     Active Substance: METOCLOPRAMIDE HYDROCHLORIDE
     Dates: start: 20230628, end: 20230629
  17. TORSEMIDE [Concomitant]
     Active Substance: TORSEMIDE
     Dates: start: 20230628, end: 20230629
  18. OLANZAPINE [Concomitant]
     Active Substance: OLANZAPINE
     Dates: start: 20230628, end: 20230629

REACTIONS (1)
  - Enteritis [Recovered/Resolved]

NARRATIVE: CASE EVENT DATE: 20230705
